FAERS Safety Report 24329529 (Version 1)
Quarter: 2024Q3

REPORT INFORMATION
  Report Type: Spontaneous
  Country: US (occurrence: US)
  Receive Date: 20240917
  Receipt Date: 20240917
  Transmission Date: 20241017
  Serious: No
  Sender: JOHNSON AND JOHNSON
  Company Number: US-JNJFOC-20240929189

PATIENT
  Age: 10 Year
  Weight: 31.78 kg

DRUGS (2)
  1. RISPERDAL [Suspect]
     Active Substance: RISPERIDONE
     Indication: Attention deficit hyperactivity disorder
     Route: 065
     Dates: start: 202405
  2. RISPERDAL [Suspect]
     Active Substance: RISPERIDONE
     Indication: Autism spectrum disorder
     Route: 065
     Dates: start: 202409

REACTIONS (5)
  - Poor quality sleep [Unknown]
  - Abnormal behaviour [Unknown]
  - Impulsive behaviour [Unknown]
  - Dosage not adjusted [Unknown]
  - Obsessive-compulsive disorder [Unknown]
